FAERS Safety Report 16783136 (Version 1)
Quarter: 2019Q3

REPORT INFORMATION
  Report Type: Spontaneous
  Country: US (occurrence: US)
  Receive Date: 20190907
  Receipt Date: 20190907
  Transmission Date: 20191005
  Serious: No
  Sender: FDA-Public Use
  Company Number: US-CELGENEUS-USA-20190810843

PATIENT
  Sex: Female

DRUGS (2)
  1. OTEZLA [Suspect]
     Active Substance: APREMILAST
     Indication: MALAISE
     Dosage: 60 MILLIGRAM
     Route: 048
     Dates: start: 20190720
  2. OTEZLA [Suspect]
     Active Substance: APREMILAST
     Indication: OFF LABEL USE

REACTIONS (1)
  - Depression [Unknown]

NARRATIVE: CASE EVENT DATE: 2019
